FAERS Safety Report 5226584-1 (Version None)
Quarter: 2007Q1

REPORT INFORMATION
  Report Type: 
  Country: None (occurrence: None)
  Receive Date: 20070201
  Receipt Date: 20070123
  Transmission Date: 20070707
  Serious: Yes (Other)
  Sender: FDA-Public Use
  Company Number: US-PFIZER INC-2007006564

PATIENT
  Sex: Female
  Weight: 85.7 kg

DRUGS (4)
  1. MEDROL [Suspect]
     Indication: AUTOIMMUNE THYROIDITIS
  2. MEDROL [Suspect]
     Indication: ADRENAL INSUFFICIENCY
  3. GARLIC [Concomitant]
     Indication: METAL POISONING
  4. THYROID TAB [Concomitant]
     Dates: start: 20060601

REACTIONS (5)
  - HYPERSENSITIVITY [None]
  - LIP SWELLING [None]
  - OEDEMA MOUTH [None]
  - SENSATION OF PRESSURE [None]
  - SWELLING FACE [None]
